FAERS Safety Report 18044831 (Version 1)
Quarter: 2020Q3

REPORT INFORMATION
  Report Type: Spontaneous
  Country: FR (occurrence: FR)
  Receive Date: 20200720
  Receipt Date: 20200720
  Transmission Date: 20201103
  Serious: Yes (Hospitalization)
  Sender: FDA-Public Use
  Company Number: FR-MYLANLABS-2020M1064090

PATIENT
  Age: 76 Year
  Sex: Male
  Weight: 94 kg

DRUGS (19)
  1. LEVOFLOXACINE                      /01278901/ [Suspect]
     Active Substance: LEVOFLOXACIN
     Indication: INFECTION
     Dosage: 500 MILLIGRAM, QD
     Route: 048
     Dates: start: 20200229
  2. DAPTOMYCINE [Concomitant]
     Active Substance: DAPTOMYCIN
     Indication: INFECTION
     Dosage: UNK
     Route: 042
     Dates: start: 20200221, end: 20200227
  3. MONOPROST [Concomitant]
     Active Substance: LATANOPROST
     Dosage: 1 GTT DROPS, QD
     Route: 047
  4. DOLIPRANE [Concomitant]
     Active Substance: ACETAMINOPHEN
     Dosage: 1 GRAM
     Route: 048
  5. LYRICA CR [Concomitant]
     Active Substance: PREGABALIN
     Dosage: 300 MILLIGRAM, QD
     Route: 048
  6. ATORVASTATINE                      /01326101/ [Concomitant]
     Active Substance: ATORVASTATIN
     Dosage: 40 MILLIGRAM, QD
     Route: 048
  7. TOUJEO [Concomitant]
     Active Substance: INSULIN GLARGINE
     Dosage: 26 INTERNATIONAL UNIT, QD
     Route: 058
  8. ELIQUIS [Concomitant]
     Active Substance: APIXABAN
     Dosage: 10 MILLIGRAM, QD
     Route: 048
  9. CONTRAMAL [Concomitant]
     Active Substance: TRAMADOL HYDROCHLORIDE
     Dosage: 50 MILLIGRAM
     Route: 048
  10. VORICONAZOLE. [Suspect]
     Active Substance: VORICONAZOLE
     Indication: INFECTION
     Dosage: 700 MILLIGRAM, QD
     Route: 048
     Dates: start: 20200221, end: 20200302
  11. OPHTIM [Concomitant]
     Active Substance: TIMOLOL MALEATE
     Dosage: 2 GTT DROPS, QD(DROP (1/12 MILLILITRE)
     Route: 047
  12. NEBIVOLOL. [Concomitant]
     Active Substance: NEBIVOLOL
     Dosage: 5 MILLIGRAM, QD
     Route: 048
  13. AUGMENTIN XR [Suspect]
     Active Substance: AMOXICILLIN\CLAVULANATE POTASSIUM
     Indication: INFECTION
     Dosage: UNK
     Route: 048
     Dates: start: 20200302, end: 20200302
  14. PANTOPRAZOLE [Concomitant]
     Active Substance: PANTOPRAZOLE
     Dosage: 40 MILLIGRAM, QD
     Route: 048
  15. VICTOZA [Concomitant]
     Active Substance: LIRAGLUTIDE
     Dosage: 1.8 MILLIGRAM, QD
     Route: 058
  16. LAROXYL [Concomitant]
     Active Substance: AMITRIPTYLINE HYDROCHLORIDE
     Dosage: 15 GTT DROPS, QD
     Route: 048
  17. CEFAZOLINE MYLAN [Suspect]
     Active Substance: CEFAZOLIN SODIUM
     Indication: INFECTION
     Dosage: 700 MILLIGRAM, QD
     Route: 042
     Dates: start: 20200229
  18. FUROSEMIDE. [Concomitant]
     Active Substance: FUROSEMIDE
     Dosage: 180 MILLIGRAM, QD
     Route: 042
  19. XATRAL                             /00975302/ [Concomitant]
     Active Substance: ALFUZOSIN HYDROCHLORIDE
     Dosage: 10 MILLIGRAM, QD
     Route: 048

REACTIONS (1)
  - Epilepsy [Recovered/Resolved]

NARRATIVE: CASE EVENT DATE: 20200302
